FAERS Safety Report 6146636-1 (Version None)
Quarter: 2009Q2

REPORT INFORMATION
  Report Type: 
  Country: None (occurrence: None)
  Receive Date: 20090403
  Receipt Date: 20090403
  Transmission Date: 20091009
  Serious: No
  Sender: FDA-Public Use
  Company Number: None

PATIENT
  Age: 27 Year
  Sex: Female
  Weight: 68.0396 kg

DRUGS (2)
  1. MORPHINE [Suspect]
     Indication: ANALGESIA
     Dosage: 5MG Q1 PRN IV 3 DOSES
     Route: 042
     Dates: start: 20090325
  2. ZOFRAN [Concomitant]

REACTIONS (1)
  - URTICARIA [None]
